FAERS Safety Report 16192275 (Version 1)
Quarter: 2019Q2

REPORT INFORMATION
  Report Type: Report from Study
  Country: GR (occurrence: GR)
  Receive Date: 20190412
  Receipt Date: 20190412
  Transmission Date: 20190711
  Serious: Yes (Other)
  Sender: FDA-Public Use
  Company Number: GR-PFIZER INC-2019154267

PATIENT
  Age: 62 Year
  Sex: Male

DRUGS (8)
  1. VANCOMYCIN HCL [Suspect]
     Active Substance: VANCOMYCIN HYDROCHLORIDE
     Indication: PNEUMONIA
  2. AMPICILLIN SODIUM/SULBACTAM SODIUM [Suspect]
     Active Substance: AMPICILLIN SODIUM\SULBACTAM SODIUM
     Indication: PNEUMONIA
     Dosage: 9 G, 3X/DAY
     Route: 042
  3. VANCOMYCIN HCL [Suspect]
     Active Substance: VANCOMYCIN HYDROCHLORIDE
     Indication: ANTIBIOTIC THERAPY
     Dosage: UNK
  4. COLISTIN [Suspect]
     Active Substance: COLISTIN
     Indication: PNEUMONIA
     Dosage: 9 MILLION IU,(LOADING DOSE FOLLOWED AFTER 12 H) UNK
     Route: 042
  5. COLISTIN [Suspect]
     Active Substance: COLISTIN
     Indication: PNEUMONIA
     Dosage: 2 MILLION IU, 3X/DAY
     Route: 055
  6. COLISTIN [Suspect]
     Active Substance: COLISTIN
     Dosage: 4.5 MILLION IU, 2X/DAY
     Route: 042
  7. TIGECYCLINE. [Suspect]
     Active Substance: TIGECYCLINE
     Indication: PNEUMONIA
     Dosage: 200 MG, UNK(LOADING DOSE FOLLOWED AFTER 12 H)
     Route: 042
  8. TIGECYCLINE. [Suspect]
     Active Substance: TIGECYCLINE
     Dosage: 100 MG, 2X/DAY (EVERY 12 HOURS)
     Route: 042

REACTIONS (1)
  - Acute kidney injury [Unknown]
